FAERS Safety Report 8948109 (Version 1)
Quarter: 2012Q4

REPORT INFORMATION
  Report Type: Report from Study
  Country: DE (occurrence: DE)
  Receive Date: 20121204
  Receipt Date: 20121204
  Transmission Date: 20130627
  Serious: Yes (Hospitalization)
  Sender: FDA-Public Use
  Company Number: DE-GLAXOSMITHKLINE-B0849290B

PATIENT
  Age: 44 Year
  Sex: Female
  Weight: 89 kg

DRUGS (2)
  1. LAPATINIB [Suspect]
     Indication: BREAST CANCER
     Dosage: 1250MG Per day
     Route: 048
     Dates: start: 20100706
  2. CAPECITABINE [Suspect]
     Indication: BREAST CANCER
     Dosage: 2000MG Per day
     Route: 048
     Dates: start: 20100706

REACTIONS (1)
  - General physical health deterioration [Recovered/Resolved]
